FAERS Safety Report 7394633-0 (Version None)
Quarter: 2011Q1

REPORT INFORMATION
  Report Type: 
  Country: None (occurrence: None)
  Receive Date: 20110324
  Receipt Date: 20110314
  Transmission Date: 20110831
  Serious: Yes (Hospitalization)
  Sender: FDA-Public Use
  Company Number: B0706937A

PATIENT
  Age: 57 Year
  Sex: Male

DRUGS (1)
  1. NICOTINE [Suspect]
     Indication: TOBACCO USER
     Dosage: TRANSDERMAL
     Route: 062

REACTIONS (13)
  - APPLICATION SITE PRURITUS [None]
  - PRURITUS GENERALISED [None]
  - HYPERHIDROSIS [None]
  - RASH [None]
  - VOMITING [None]
  - LIMB INJURY [None]
  - PERIORBITAL OEDEMA [None]
  - APPLICATION SITE URTICARIA [None]
  - CHEST PAIN [None]
  - BLOOD PRESSURE INCREASED [None]
  - KOUNIS SYNDROME [None]
  - HEART RATE INCREASED [None]
  - DIASTOLIC DYSFUNCTION [None]
